FAERS Safety Report 10412715 (Version 1)
Quarter: 2014Q3

REPORT INFORMATION
  Report Type: Spontaneous
  Country: US (occurrence: None)
  Receive Date: 20140825
  Receipt Date: 20140825
  Transmission Date: 20150326
  Serious: Yes (Death)
  Sender: FDA-Public Use
  Company Number: COR_00058_2014

PATIENT
  Age: 77 Year
  Sex: Female

DRUGS (3)
  1. CARBOPLATIN. [Suspect]
     Active Substance: CARBOPLATIN
     Indication: PELVIC MASS
     Dosage: DF
     Dates: start: 200611, end: 200704
  2. PACLITAXEL. [Concomitant]
     Active Substance: PACLITAXEL
  3. CARBOPLATIN. [Suspect]
     Active Substance: CARBOPLATIN
     Indication: ADENOCARCINOMA
     Dosage: DF
     Dates: start: 200611, end: 200704

REACTIONS (4)
  - Hypotension [None]
  - Autoimmune haemolytic anaemia [None]
  - Blood sodium decreased [None]
  - Unresponsive to stimuli [None]
